FAERS Safety Report 5252986-3 (Version None)
Quarter: 2007Q1

REPORT INFORMATION
  Report Type: 
  Country: None (occurrence: None)
  Receive Date: 20070220
  Receipt Date: 20070131
  Transmission Date: 20070707
  Serious: Yes (Death)
  Sender: FDA-Public Use
  Company Number: WSDF_00612

PATIENT
  Sex: Male

DRUGS (1)
  1. WINRHO SDF [Suspect]

REACTIONS (2)
  - DISSEMINATED INTRAVASCULAR COAGULATION [None]
  - INTRAVASCULAR HAEMOLYSIS [None]
